FAERS Safety Report 4301307-9 (Version None)
Quarter: 2004Q1

REPORT INFORMATION
  Report Type: 
  Country: None (occurrence: None)
  Receive Date: 20040219
  Receipt Date: 20040206
  Transmission Date: 20041129
  Serious: Yes (Hospitalization)
  Sender: FDA-Public Use
  Company Number: US066320

PATIENT
  Age: 37 Year
  Sex: Female
  Weight: 90.8 kg

DRUGS (7)
  1. PROCRIT [Suspect]
     Indication: HIV INFECTION
     Dosage: 40000 U, 1 IN 1 WEEKS, SC
     Route: 058
     Dates: start: 20040101
  2. LAMIVUDINE /ZIDOVUDINE [Concomitant]
  3. NEVIRAPINE [Concomitant]
  4. SIMVASTATOM [Concomitant]
  5. ATENOLOL [Concomitant]
  6. HYDROCHLOROTHIAZIDE [Concomitant]
  7. SERTRALINE HCL [Concomitant]

REACTIONS (4)
  - CHEST DISCOMFORT [None]
  - INJECTION SITE PAIN [None]
  - LIMB INJURY [None]
  - ROAD TRAFFIC ACCIDENT [None]
